FAERS Safety Report 23580344 (Version 2)
Quarter: 2024Q1

REPORT INFORMATION
  Report Type: Spontaneous
  Country: GB (occurrence: GB)
  Receive Date: 20240229
  Receipt Date: 20240315
  Transmission Date: 20240409
  Serious: Yes (Other)
  Sender: FDA-Public Use
  Company Number: GB-CLI-2024-009575

PATIENT

DRUGS (6)
  1. CARDIOXANE [Suspect]
     Active Substance: DEXRAZOXANE HYDROCHLORIDE
     Indication: Product used for unknown indication
     Dosage: 48MG IN 12 ML
     Route: 065
     Dates: start: 20240208
  2. DOXORUBICIN [Concomitant]
     Active Substance: DOXORUBICIN
     Indication: Soft tissue sarcoma
  3. VINCRISTINE [Concomitant]
     Active Substance: VINCRISTINE
     Indication: Soft tissue sarcoma
  4. CYCLOPHOSPHAMIDE [Concomitant]
     Active Substance: CYCLOPHOSPHAMIDE
     Indication: Soft tissue sarcoma
  5. IFOSFAMIDE [Concomitant]
     Active Substance: IFOSFAMIDE
     Indication: Soft tissue sarcoma
  6. ETOPOSIDE [Concomitant]
     Active Substance: ETOPOSIDE
     Indication: Soft tissue sarcoma

REACTIONS (1)
  - Off label use [Unknown]
